FAERS Safety Report 22616695 (Version 1)
Quarter: 2023Q2

REPORT INFORMATION
  Report Type: Spontaneous
  Country: US (occurrence: US)
  Receive Date: 20230619
  Receipt Date: 20230619
  Transmission Date: 20230721
  Serious: No
  Sender: FDA-Public Use
  Company Number: US-Blueprint Medicines Corporation-1207

PATIENT
  Sex: Female

DRUGS (1)
  1. AYVAKIT [Suspect]
     Active Substance: AVAPRITINIB
     Indication: Systemic mastocytosis
     Route: 065
     Dates: start: 20230505

REACTIONS (5)
  - Erythema [Unknown]
  - Lip swelling [Unknown]
  - Pruritus [Unknown]
  - Swelling face [Unknown]
  - Swelling of eyelid [Unknown]
